FAERS Safety Report 6677341-0 (Version None)
Quarter: 2010Q2

REPORT INFORMATION
  Report Type: 
  Country: None (occurrence: None)
  Receive Date: 20100412
  Receipt Date: 20100407
  Transmission Date: 20101027
  Serious: Yes (Hospitalization)
  Sender: FDA-Public Use
  Company Number: GXKR2010DE03906

PATIENT
  Sex: Male

DRUGS (1)
  1. CIPRO 1A PHARMA (NGX) [Suspect]
     Dosage: 500 MG, UNK
     Route: 048

REACTIONS (3)
  - ABDOMINAL PAIN UPPER [None]
  - CHOLELITHIASIS [None]
  - GASTRITIS [None]
